FAERS Safety Report 8324822-X (Version None)
Quarter: 2012Q2

REPORT INFORMATION
  Report Type: 
  Country: None (occurrence: None)
  Receive Date: 20120501
  Receipt Date: 20120427
  Transmission Date: 20120825
  Serious: Yes (Hospitalization)
  Sender: FDA-Public Use
  Company Number: PHHY2012CA029315

PATIENT
  Sex: Female

DRUGS (9)
  1. RAMIPRIL [Concomitant]
  2. WARFARIN SODIUM [Concomitant]
  3. BISOPROLOL FUMARATE [Concomitant]
  4. FUROSEMIDE [Concomitant]
  5. OXAZEPAM [Concomitant]
  6. LIPITOR [Concomitant]
  7. ZOLEDRONOC ACID [Suspect]
     Indication: OSTEOPOROSIS
     Route: 042
     Dates: start: 20110518
  8. BECLOMETHASONE DIPROPIONATE [Concomitant]
     Dosage: UNK UKN, BID
  9. FOSAMAX [Concomitant]

REACTIONS (2)
  - LIMB DISCOMFORT [None]
  - PAIN IN EXTREMITY [None]
